FAERS Safety Report 5534490-8 (Version None)
Quarter: 2007Q4

REPORT INFORMATION
  Report Type: 
  Country: None (occurrence: None)
  Receive Date: 20071205
  Receipt Date: 20071122
  Transmission Date: 20080405
  Serious: Yes (Hospitalization)
  Sender: FDA-Public Use
  Company Number: IE-ASTRAZENECA-2007GB02398

PATIENT
  Age: 5 Year

DRUGS (1)
  1. NEXIUM [Suspect]
     Route: 048
     Dates: start: 20071101

REACTIONS (1)
  - DRUG DISPENSING ERROR [None]
